FAERS Safety Report 6890732-8 (Version None)
Quarter: 2010Q3

REPORT INFORMATION
  Report Type: 
  Country: None (occurrence: None)
  Receive Date: 20100731
  Receipt Date: 20090310
  Transmission Date: 20110219
  Serious: No
  Sender: FDA-Public Use
  Company Number: US-PFIZER INC-2008034235

PATIENT
  Sex: Female
  Weight: 84.37 kg

DRUGS (14)
  1. LIPITOR [Suspect]
     Indication: CORONARY ARTERY BYPASS
     Route: 048
     Dates: start: 20021021
  2. LIPITOR [Suspect]
     Indication: HYPERLIPIDAEMIA
  3. ATENOLOL [Concomitant]
  4. ANTIHISTAMINES [Concomitant]
     Indication: SEASONAL ALLERGY
  5. LISINOPRIL [Concomitant]
  6. ACETYLSALICYLIC ACID SRT [Concomitant]
  7. MULTIVITAMIN [Concomitant]
  8. VITAMIN B [Concomitant]
  9. ASCORBIC ACID [Concomitant]
  10. VITAMIN E [Concomitant]
  11. CALCIUM [Concomitant]
  12. ALBUTEROL [Concomitant]
  13. BETACAROTENE [Concomitant]
  14. ALL OTHER THERAPEUTIC PRODUCTS [Concomitant]

REACTIONS (2)
  - HERPES SIMPLEX [None]
  - WRONG TECHNIQUE IN DRUG USAGE PROCESS [None]
